FAERS Safety Report 6535373-7 (Version None)
Quarter: 2010Q1

REPORT INFORMATION
  Report Type: 
  Country: None (occurrence: None)
  Receive Date: 20100105
  Receipt Date: 20091221
  Transmission Date: 20100710
  Serious: Yes (Hospitalization)
  Sender: FDA-Public Use
  Company Number: 231122J09USA

PATIENT
  Age: 58 Year
  Sex: Female
  Weight: 66 kg

DRUGS (8)
  1. REBIF [Suspect]
     Indication: MULTIPLE SCLEROSIS
     Dosage: 44 MCG, 3 IN 1 WEEKS, SUBCUTANEOUS
     Dates: start: 20090221, end: 20091001
  2. LEXAPRO [Concomitant]
  3. LISINOPRIL [Concomitant]
  4. AMITRIPTYLINE HCL [Concomitant]
  5. GABAPENTIN [Concomitant]
  6. CALCIUM (CALCIUM-SANDOZ /00009901/) [Concomitant]
  7. VITAMIN D [Concomitant]
  8. ESTROGEN/PROGESTERONE (PROGESTERONE W/ESTROGENS/) [Concomitant]

REACTIONS (3)
  - INFLUENZA LIKE ILLNESS [None]
  - INJECTION SITE PAIN [None]
  - UTERINE LEIOMYOMA [None]
